FAERS Safety Report 17880640 (Version 2)
Quarter: 2020Q4

REPORT INFORMATION
  Report Type: Spontaneous
  Country: CA (occurrence: CA)
  Receive Date: 20200610
  Receipt Date: 20201130
  Transmission Date: 20210113
  Serious: No
  Sender: FDA-Public Use
  Company Number: CA-PFIZER INC-2020225541

PATIENT
  Age: 60 Year
  Sex: Male

DRUGS (1)
  1. CARBOPLATIN. [Suspect]
     Active Substance: CARBOPLATIN
     Indication: GLIOBLASTOMA
     Dosage: 748 MG, MONTHLY
     Route: 013

REACTIONS (3)
  - Off label use [Unknown]
  - Dysgeusia [Recovered/Resolved]
  - Product use issue [Unknown]
